FAERS Safety Report 6338442-X (Version None)
Quarter: 2009Q3

REPORT INFORMATION
  Report Type: 
  Country: None (occurrence: None)
  Receive Date: 20090901
  Receipt Date: 20090817
  Transmission Date: 20100115
  Serious: Yes (Hospitalization)
  Sender: FDA-Public Use
  Company Number: 2008AL008844

PATIENT
  Age: 71 Year
  Sex: Female

DRUGS (13)
  1. DIGOXIN [Suspect]
     Indication: ARRHYTHMIA
     Dosage: PO
     Route: 048
  2. COREG [Concomitant]
  3. LASIX [Concomitant]
  4. MICRO-K [Concomitant]
  5. LEXAPRO [Concomitant]
  6. ZETIA [Concomitant]
  7. AMIODARONE HCL [Concomitant]
  8. CAPTOPRIL [Concomitant]
  9. NEXIUM [Concomitant]
  10. ASPIRIN [Concomitant]
  11. OXAZEPAM [Concomitant]
  12. TEMAZEPAM [Concomitant]
  13. DESMETHYLDIAZEPAM [Concomitant]

REACTIONS (30)
  - ABDOMINAL PAIN [None]
  - ANGINA PECTORIS [None]
  - ANHEDONIA [None]
  - ANXIETY [None]
  - ASTHENIA [None]
  - BACK PAIN [None]
  - BUNDLE BRANCH BLOCK RIGHT [None]
  - CHEST DISCOMFORT [None]
  - COLOUR BLINDNESS ACQUIRED [None]
  - DIARRHOEA [None]
  - DIZZINESS [None]
  - DYSPNOEA [None]
  - EXTRASYSTOLES [None]
  - FALL [None]
  - FATIGUE [None]
  - FEELING HOT [None]
  - HALO VISION [None]
  - HEART RATE IRREGULAR [None]
  - HYPERHIDROSIS [None]
  - HYPOTENSION [None]
  - INJURY [None]
  - INSOMNIA [None]
  - LOSS OF CONSCIOUSNESS [None]
  - MYALGIA [None]
  - MYOCARDIAL INFARCTION [None]
  - PAIN [None]
  - PALPITATIONS [None]
  - STAPHYLOCOCCAL INFECTION [None]
  - VENTRICULAR TACHYCARDIA [None]
  - WEIGHT INCREASED [None]
